FAERS Safety Report 9531727 (Version 3)
Quarter: 2013Q4

REPORT INFORMATION
  Report Type: Other
  Country: CA (occurrence: CA)
  Receive Date: 20130918
  Receipt Date: 20131008
  Transmission Date: 20140711
  Serious: No
  Sender: FDA-Public Use
  Company Number: CA-SHIRE-ALL1-2013-06203

PATIENT
  Age: 3 Year
  Sex: Male
  Weight: 26 kg

DRUGS (3)
  1. ELAPRASE [Suspect]
     Indication: MUCOPOLYSACCHARIDOSIS III
     Dosage: 18 MG, 1X/WEEK
     Route: 041
     Dates: start: 20111102
  2. NORMAL SALINE [Concomitant]
     Indication: PRODUCT USED FOR UNKNOWN INDICATION
     Dosage: 10 ML, AS REQ^D
     Route: 042
  3. HEPARIN [Concomitant]
     Indication: PRODUCT USED FOR UNKNOWN INDICATION
     Dosage: 50 IU, AS REQ^D
     Route: 042

REACTIONS (4)
  - Infusion site extravasation [Recovered/Resolved]
  - Infusion site bruising [Recovered/Resolved]
  - Restlessness [Unknown]
  - Off label use [Not Recovered/Not Resolved]
